FAERS Safety Report 8277433-9 (Version None)
Quarter: 2012Q2

REPORT INFORMATION
  Report Type: 
  Country: None (occurrence: None)
  Receive Date: 20120412
  Receipt Date: 20120330
  Transmission Date: 20120825
  Serious: Yes (Hospitalization, Other)
  Sender: FDA-Public Use
  Company Number: US-PFIZER INC-2012082444

PATIENT
  Sex: Female

DRUGS (1)
  1. RELPAX [Suspect]
     Dosage: UNK

REACTIONS (3)
  - FOOD INTERACTION [None]
  - SEROTONIN SYNDROME [None]
  - LOSS OF CONSCIOUSNESS [None]
